FAERS Safety Report 4945278-0 (Version None)
Quarter: 2006Q1

REPORT INFORMATION
  Report Type: 
  Country: None (occurrence: None)
  Receive Date: 20060117
  Receipt Date: 20050817
  Transmission Date: 20060701
  Serious: Yes (Other)
  Sender: FDA-Public Use
  Company Number: 414796

PATIENT
  Sex: Male

DRUGS (2)
  1. ROCEPHIN [Suspect]
     Indication: PNEUMONIA
     Dosage: INTRAVENOUS
     Route: 042
     Dates: start: 20050816, end: 20050816
  2. ROCEPHIN [Suspect]
     Indication: PNEUMONIA
     Dosage: INTRAMUSCULAR
     Route: 030
     Dates: start: 20050415, end: 20050415

REACTIONS (10)
  - BURNING SENSATION [None]
  - CHOKING [None]
  - DYSPNOEA [None]
  - EYE ROLLING [None]
  - GENERALISED ERYTHEMA [None]
  - HYPERHIDROSIS [None]
  - HYPERSENSITIVITY [None]
  - PARAESTHESIA [None]
  - TREMOR [None]
  - VOMITING [None]
